FAERS Safety Report 25367798 (Version 2)
Quarter: 2025Q3

REPORT INFORMATION
  Report Type: Spontaneous
  Country: EU (occurrence: EU)
  Receive Date: 20250528
  Receipt Date: 20250725
  Transmission Date: 20251020
  Serious: Yes (Other)
  Sender: Karo Pharma
  Company Number: EU-Karo Pharma-2177536

PATIENT
  Age: 37 Year

DRUGS (1)
  1. LAMISIL [Suspect]
     Active Substance: TERBINAFINE HYDROCHLORIDE
     Indication: Tinea pedis
     Dates: end: 20250412

REACTIONS (2)
  - Deafness [Recovered/Resolved with Sequelae]
  - Sudden hearing loss [Recovered/Resolved with Sequelae]
